FAERS Safety Report 7668967-6 (Version None)
Quarter: 2011Q3

REPORT INFORMATION
  Report Type: 
  Country: None (occurrence: None)
  Receive Date: 20110808
  Receipt Date: 20110727
  Transmission Date: 20111222
  Serious: Yes (Hospitalization)
  Sender: FDA-Public Use
  Company Number: DE-GLAXOSMITHKLINE-B0721037A

PATIENT
  Sex: Female
  Weight: 61 kg

DRUGS (2)
  1. BLINDED STUDY MEDICATION [Suspect]
     Indication: OVARIAN CANCER
     Dosage: 800MG PER DAY
     Route: 048
     Dates: start: 20110507
  2. TOPOTECAN [Suspect]
     Indication: OVARIAN CANCER
     Dosage: 2.15MG PER DAY
     Route: 042
     Dates: start: 20110502

REACTIONS (2)
  - PALMAR-PLANTAR ERYTHRODYSAESTHESIA SYNDROME [None]
  - PYREXIA [None]
